FAERS Safety Report 6237717-2 (Version None)
Quarter: 2009Q2

REPORT INFORMATION
  Report Type: 
  Country: None (occurrence: None)
  Receive Date: 20090617
  Receipt Date: 20090602
  Transmission Date: 20091009
  Serious: Yes (Other)
  Sender: FDA-Public Use
  Company Number: DSM-2009-00694

PATIENT
  Age: 70 Year
  Sex: Female
  Weight: 77 kg

DRUGS (3)
  1. ALTEIS DUO (HYDROCHLOROTHIAZIDE OLMESARTAN MEDOXOMIL) (TABLET) (HYDROC [Suspect]
     Indication: HYPERTENSION
     Dosage: 20MG/ 25 MG (1 IN 1 D), ORAL, 20MG/ 25 MG (1 IN 1 D), ORAL
     Route: 048
     Dates: start: 20080208, end: 20090317
  2. ALTEIS DUO (HYDROCHLOROTHIAZIDE OLMESARTAN MEDOXOMIL) (TABLET) (HYDROC [Suspect]
     Indication: HYPERTENSION
     Dosage: 20MG/ 25 MG (1 IN 1 D), ORAL, 20MG/ 25 MG (1 IN 1 D), ORAL
     Route: 048
     Dates: start: 20090401
  3. MEDIATOR (BENFLUOREX HYDROCHLORIDE) (TABLET) (BENFLUOREX HYDROCHLORIDE [Concomitant]

REACTIONS (3)
  - DIARRHOEA [None]
  - HYPOKALAEMIA [None]
  - WEIGHT DECREASED [None]
